FAERS Safety Report 23147013 (Version 2)
Quarter: 2023Q4

REPORT INFORMATION
  Report Type: Spontaneous
  Country: MT (occurrence: MT)
  Receive Date: 20231106
  Receipt Date: 20231116
  Transmission Date: 20240109
  Serious: Yes (Other)
  Sender: FDA-Public Use
  Company Number: MT-002147023-NVSC2023MT232495

PATIENT

DRUGS (1)
  1. DICLOFENAC SODIUM [Suspect]
     Active Substance: DICLOFENAC\DICLOFENAC SODIUM
     Indication: Antiinflammatory therapy
     Dosage: 75 MG, BID(150 MG QD) (EXTENDED-RELEASE TABLET)
     Route: 048
     Dates: start: 20231026, end: 20231026

REACTIONS (4)
  - Hallucination [Recovered/Resolved]
  - Gastrooesophageal reflux disease [Unknown]
  - Vision blurred [Recovered/Resolved]
  - Vomiting [Unknown]

NARRATIVE: CASE EVENT DATE: 20231026
